FAERS Safety Report 8168500-9 (Version None)
Quarter: 2012Q1

REPORT INFORMATION
  Report Type: 
  Country: None (occurrence: None)
  Receive Date: 20120227
  Receipt Date: 20120227
  Transmission Date: 20120608
  Serious: Yes (Hospitalization)
  Sender: FDA-Public Use
  Company Number: None

PATIENT
  Age: 72 Month
  Sex: Female
  Weight: 68.038 kg

DRUGS (1)
  1. CELEBREX [Suspect]
     Indication: BURSITIS
     Route: 048
     Dates: start: 20120220, end: 20120221

REACTIONS (5)
  - RESPIRATORY DISORDER [None]
  - SWELLING FACE [None]
  - RASH PRURITIC [None]
  - SWOLLEN TONGUE [None]
  - LOCAL SWELLING [None]
